FAERS Safety Report 12069167 (Version 1)
Quarter: 2016Q1

REPORT INFORMATION
  Report Type: Spontaneous
  Country: PT (occurrence: PT)
  Receive Date: 20160211
  Receipt Date: 20160211
  Transmission Date: 20160526
  Serious: Yes (Other)
  Sender: FDA-Public Use
  Company Number: PT-SUNOVION-2015SUN000023

PATIENT

DRUGS (7)
  1. INDOMETACINA [Concomitant]
     Indication: TRIGEMINAL NEURALGIA
     Dosage: 75 MG, UNKNOWN
     Route: 048
     Dates: start: 20150129, end: 20150208
  2. IRBESARTAN AND HIDROCLOROTIAZIDA [Concomitant]
     Indication: HYPERTENSION
     Dosage: 300MG + 12,5MG, 1X / DAY
     Route: 048
     Dates: start: 20150209, end: 20150216
  3. AMLODIPINE W/LISINOPRIL [Concomitant]
     Indication: HYPERTENSION
     Dosage: 5MG + 20MG, 1X / DAY
     Route: 048
     Dates: start: 20150202, end: 20150208
  4. ZEBINIX [Suspect]
     Active Substance: ESLICARBAZEPINE ACETATE
     Indication: TRIGEMINAL NEURALGIA
     Dosage: 800 MG, 1X / DAY
     Route: 048
     Dates: start: 20150129, end: 20150219
  5. GABAPENTINA RATIOPHARM [Concomitant]
     Indication: TRIGEMINAL NEURALGIA
     Dosage: UNK
     Dates: start: 20150129, end: 20150219
  6. AMLODIPINE W/LISINOPRIL [Concomitant]
     Indication: HYPERTENSION
  7. IRBESARTAN AND HIDROCLOROTIAZIDA [Concomitant]
     Indication: HYPERTENSION

REACTIONS (7)
  - Skin test positive [Unknown]
  - Rash generalised [Recovered/Resolved]
  - Face oedema [Recovered/Resolved]
  - Oedema peripheral [Recovered/Resolved]
  - Drug dose titration not performed [Unknown]
  - Product use issue [Unknown]
  - Eosinophilia [Recovered/Resolved]

NARRATIVE: CASE EVENT DATE: 20150129
